FAERS Safety Report 12174551 (Version 2)
Quarter: 2016Q1

REPORT INFORMATION
  Report Type: Spontaneous
  Country: JP (occurrence: JP)
  Receive Date: 20160312
  Receipt Date: 20160327
  Transmission Date: 20160526
  Serious: Yes (Hospitalization)
  Sender: FDA-Public Use
  Company Number: JP-AMGEN-JPNSP2016031418

PATIENT
  Age: 32 Year
  Sex: Male

DRUGS (12)
  1. GRAN [Suspect]
     Active Substance: FILGRASTIM
     Dosage: UNK
     Route: 065
  2. MESNA. [Suspect]
     Active Substance: MESNA
     Indication: PRODUCT USED FOR UNKNOWN INDICATION
     Dosage: UNK
     Route: 042
  3. GRAN [Suspect]
     Active Substance: FILGRASTIM
     Indication: COLONY STIMULATING FACTOR PROPHYLAXIS
     Dosage: UNK, 1X/3WEEKS
     Route: 065
  4. CISPLATIN. [Suspect]
     Active Substance: CISPLATIN
     Dosage: 100 MG/M2, UNK
     Route: 041
  5. BLEOMYCIN HYDROCHLORIDE [Suspect]
     Active Substance: BLEOMYCIN HYDROCHLORIDE
     Indication: CHORIOCARCINOMA
     Dosage: UNK
     Route: 065
  6. G-LASTA [Suspect]
     Active Substance: PEGFILGRASTIM
     Indication: COLONY STIMULATING FACTOR PROPHYLAXIS
     Dosage: UNK UNK, 1X/3WEEKS
     Route: 058
  7. IFOSFAMIDE. [Suspect]
     Active Substance: IFOSFAMIDE
     Indication: CHORIOCARCINOMA
     Dosage: 2 MUG/M2, UNK
     Route: 041
  8. G-LASTA [Suspect]
     Active Substance: PEGFILGRASTIM
     Dosage: UNK
     Route: 058
  9. CISPLATIN. [Suspect]
     Active Substance: CISPLATIN
     Indication: CHORIOCARCINOMA
     Dosage: UNK
     Route: 041
  10. CISPLATIN. [Suspect]
     Active Substance: CISPLATIN
     Dosage: 20 MG/M2, 1X/3WEEKS
     Route: 041
  11. BLEOMYCIN HYDROCHLORIDE [Suspect]
     Active Substance: BLEOMYCIN HYDROCHLORIDE
     Dosage: 25 MG, UNK
     Route: 041
  12. BLEOMYCIN HYDROCHLORIDE [Suspect]
     Active Substance: BLEOMYCIN HYDROCHLORIDE
     Dosage: 30 MG/M2, 1X/3WEEKS
     Route: 065

REACTIONS (1)
  - Tumour lysis syndrome [Recovering/Resolving]
